FAERS Safety Report 6532067-9 (Version None)
Quarter: 2010Q1

REPORT INFORMATION
  Report Type: 
  Country: None (occurrence: None)
  Receive Date: 20100108
  Receipt Date: 20091230
  Transmission Date: 20100710
  Serious: Yes (Hospitalization)
  Sender: FDA-Public Use
  Company Number: GXKR2009GB13966

PATIENT

DRUGS (1)
  1. CLARITHROMYCIN [Suspect]
     Route: 048

REACTIONS (3)
  - GLOSSITIS [None]
  - GLOSSODYNIA [None]
  - PRODUCT TASTE ABNORMAL [None]
